FAERS Safety Report 5632011-2 (Version None)
Quarter: 2008Q1

REPORT INFORMATION
  Report Type: 
  Country: None (occurrence: None)
  Receive Date: 20080220
  Receipt Date: 20080215
  Transmission Date: 20080703
  Serious: Yes (Hospitalization)
  Sender: FDA-Public Use
  Company Number: JP-ASTRAZENECA-2008AP01121

PATIENT
  Age: 60 Year
  Sex: Male

DRUGS (2)
  1. XYLOCAINE [Suspect]
     Indication: ARTHRALGIA
     Dosage: DOSE UNKNOWN
     Route: 008
     Dates: start: 20080208
  2. DECADRON [Concomitant]
     Indication: ARTHRALGIA
     Dosage: DOSE UNKNOWN
     Route: 008
     Dates: start: 20080208

REACTIONS (1)
  - AGITATION [None]
